FAERS Safety Report 19602944 (Version 1)
Quarter: 2021Q3

REPORT INFORMATION
  Report Type: Spontaneous
  Country: US (occurrence: US)
  Receive Date: 20210723
  Receipt Date: 20210723
  Transmission Date: 20211014
  Serious: Yes (Other)
  Sender: FDA-Public Use
  Company Number: US-GW PHARMA-202107USGW03485

PATIENT

DRUGS (1)
  1. EPIDIOLEX [Suspect]
     Active Substance: CANNABIDIOL
     Indication: EPILEPSY
     Dosage: 4.87 MG/KG/DAY, 250 MILLIGRAM, BID
     Route: 048
     Dates: start: 20201020

REACTIONS (2)
  - Fatigue [Not Recovered/Not Resolved]
  - Product use in unapproved indication [Unknown]
